FAERS Safety Report 24844947 (Version 2)
Quarter: 2025Q1

REPORT INFORMATION
  Report Type: Spontaneous
  Country: CN (occurrence: CN)
  Receive Date: 20250115
  Receipt Date: 20250120
  Transmission Date: 20250409
  Serious: Yes (Other)
  Sender: NOVARTIS
  Company Number: CN-002147023-NVSC2025CN004967

PATIENT
  Age: 59 Year
  Sex: Female
  Weight: 48 kg

DRUGS (1)
  1. IMATINIB MESYLATE [Suspect]
     Active Substance: IMATINIB MESYLATE
     Indication: Tumour treating fields therapy
     Dosage: 200 MG, QD (2 TABLETS)
     Route: 048
     Dates: start: 20241210, end: 20250109

REACTIONS (6)
  - Rash [Not Recovered/Not Resolved]
  - Pruritus [Not Recovered/Not Resolved]
  - Oedema [Not Recovered/Not Resolved]
  - Skin exfoliation [Unknown]
  - Skin toxicity [Unknown]
  - Face oedema [Unknown]

NARRATIVE: CASE EVENT DATE: 20241211
